FAERS Safety Report 12494645 (Version 1)
Quarter: 2016Q2

REPORT INFORMATION
  Report Type: Spontaneous
  Country: DE (occurrence: DE)
  Receive Date: 20160624
  Receipt Date: 20160624
  Transmission Date: 20160815
  Serious: Yes (Death, Hospitalization, Other)
  Sender: FDA-Public Use
  Company Number: GXKR2016DE002868

PATIENT
  Sex: Female

DRUGS (2)
  1. METFORMIN 1A PHARMA [Suspect]
     Active Substance: METFORMIN HYDROCHLORIDE
     Indication: DIABETES MELLITUS
     Dosage: UNK UKN, UNK
     Route: 048
  2. ANALGESICS [Concomitant]
     Active Substance: UNSPECIFIED INGREDIENT
     Indication: PRODUCT USED FOR UNKNOWN INDICATION

REACTIONS (3)
  - Death [Fatal]
  - Ascites [Unknown]
  - Hepatitis [Unknown]
